FAERS Safety Report 14017499 (Version 3)
Quarter: 2017Q4

REPORT INFORMATION
  Report Type: Spontaneous
  Country: US (occurrence: US)
  Receive Date: 20170927
  Receipt Date: 20171031
  Transmission Date: 20180321
  Serious: No
  Sender: FDA-Public Use
  Company Number: US-GLAXOSMITHKLINE-US2017GSK148256

PATIENT
  Sex: Female

DRUGS (1)
  1. BREO ELLIPTA [Suspect]
     Active Substance: FLUTICASONE FUROATE\VILANTEROL TRIFENATATE
     Indication: CHEST DISCOMFORT
     Dosage: 1 PUFF(S), QD
     Route: 055

REACTIONS (4)
  - Wrong technique in device usage process [Unknown]
  - Drug dose omission [Unknown]
  - Chest discomfort [Unknown]
  - Product quality issue [Unknown]
